FAERS Safety Report 23751813 (Version 1)
Quarter: 2024Q2

REPORT INFORMATION
  Report Type: Spontaneous
  Country: CN (occurrence: CN)
  Receive Date: 20240417
  Receipt Date: 20240417
  Transmission Date: 20240716
  Serious: Yes (Hospitalization)
  Sender: FDA-Public Use
  Company Number: CN-TEVA-VS-3184089

PATIENT
  Age: 55 Year
  Sex: Female
  Weight: 65 kg

DRUGS (6)
  1. TREANDA [Suspect]
     Active Substance: BENDAMUSTINE HYDROCHLORIDE
     Indication: B-cell lymphoma
     Dosage: 0.9% SODIUM CHLORIDE INJECTION 500ML +BENDAMUSTINE HYDROCHLORIDE FOR INJECTION 200MG ONCE A DAY I...
     Route: 041
     Dates: start: 20231227, end: 20231228
  2. RITUXIMAB [Suspect]
     Active Substance: RITUXIMAB
     Indication: B-cell lymphoma
     Dosage: 0.9% SODIUM CHLORIDE INJECTION 500ML + RITUXIMAB INJECTION 600MG ONCE A DAY INTRAVENOUS DRIP
     Route: 041
     Dates: start: 20231227, end: 20231227
  3. METHOTREXATE [Suspect]
     Active Substance: METHOTREXATE
     Indication: B-cell lymphoma
     Dosage: PRODUCT EPORTED: PUDE: 0.9% SODIUM CHLORIDE INJECTION 10ML + METHOTREXATE FOR INJECTION 15MG ONCE...
     Route: 037
     Dates: start: 20231226, end: 20231226
  4. SODIUM CHLORIDE [Concomitant]
     Active Substance: SODIUM CHLORIDE
     Indication: B-cell lymphoma
     Dosage: 0.9% SODIUM CHLORIDE INJECTION 500ML + RITUXIMAB INJECTION 600MG ONCE A DAY INTRAVENOUS DRIP
     Route: 041
     Dates: start: 20231227, end: 20231227
  5. SODIUM CHLORIDE [Concomitant]
     Active Substance: SODIUM CHLORIDE
     Indication: B-cell lymphoma
     Dosage: 0.9% SODIUM CHLORIDE INJECTION 500ML +BENDAMUSTINE HYDROCHLORIDE FOR INJECTION 200MG ONCE A DAY I...
     Route: 041
     Dates: start: 20231227, end: 20231228
  6. SODIUM CHLORIDE [Concomitant]
     Active Substance: SODIUM CHLORIDE
     Indication: B-cell lymphoma
     Dosage: 0.9% SODIUM CHLORIDE INJECTION 10ML + METHOTREXATE FOR INJECTION 15MG ONCE A DAY INTRATHECAL INJE...
     Route: 041
     Dates: start: 20231226, end: 20231226

REACTIONS (2)
  - Myelosuppression [Recovering/Resolving]
  - White blood cell count decreased [Unknown]

NARRATIVE: CASE EVENT DATE: 20240105
